FAERS Safety Report 19609339 (Version 1)
Quarter: 2021Q3

REPORT INFORMATION
  Report Type: Spontaneous
  Country: JP (occurrence: JP)
  Receive Date: 20210726
  Receipt Date: 20210726
  Transmission Date: 20211014
  Serious: Yes (Life-Threatening, Hospitalization)
  Sender: FDA-Public Use
  Company Number: JP-JUBILANT CADISTA PHARMACEUTICALS-2021JUB00213

PATIENT
  Age: 85 Year
  Sex: Female

DRUGS (4)
  1. OSIMERTINIB. [Suspect]
     Active Substance: OSIMERTINIB
     Indication: LUNG NEOPLASM MALIGNANT
     Dosage: 40 MG, 1X/DAY
     Route: 048
  2. CHINESE TRADITIONAL MEDICINE (TJ?48) [Suspect]
     Active Substance: HERBALS
     Indication: LUNG NEOPLASM MALIGNANT
     Route: 065
  3. ITRACONAZOLE. [Suspect]
     Active Substance: ITRACONAZOLE
     Indication: PROPHYLAXIS
     Dosage: 200 MG, 1X/DAY
     Route: 048
  4. OSIMERTINIB. [Suspect]
     Active Substance: OSIMERTINIB
     Dosage: 40 MG, 1X/DAY
     Route: 048

REACTIONS (6)
  - Hypokalaemia [Recovered/Resolved]
  - Loss of consciousness [Recovered/Resolved]
  - Myocardial ischaemia [Recovered/Resolved]
  - Cardiac arrest [Recovered/Resolved]
  - Electrocardiogram QT prolonged [Recovered/Resolved]
  - Drug interaction [Recovered/Resolved]
